FAERS Safety Report 18793442 (Version 1)
Quarter: 2021Q1

REPORT INFORMATION
  Report Type: Spontaneous
  Country: JP (occurrence: JP)
  Receive Date: 20210127
  Receipt Date: 20210127
  Transmission Date: 20210419
  Serious: Yes (Other)
  Sender: FDA-Public Use
  Company Number: JP-ASTRAZENECA-2021A011179

PATIENT

DRUGS (1)
  1. TAGRISSO [Suspect]
     Active Substance: OSIMERTINIB
     Indication: NON-SMALL CELL LUNG CANCER
     Route: 048
     Dates: start: 20190512

REACTIONS (4)
  - Carcinoembryonic antigen increased [Unknown]
  - Dry skin [Unknown]
  - Rash [Unknown]
  - Drug resistance [Unknown]

NARRATIVE: CASE EVENT DATE: 202012
